FAERS Safety Report 6172962-6 (Version None)
Quarter: 2009Q2

REPORT INFORMATION
  Report Type: 
  Country: None (occurrence: None)
  Receive Date: 20090430
  Receipt Date: 20090427
  Transmission Date: 20091009
  Serious: Yes (Other)
  Sender: FDA-Public Use
  Company Number: US-BAYER-200819980NA

PATIENT
  Age: 28 Year
  Sex: Female
  Weight: 68 kg

DRUGS (2)
  1. MIRENA [Suspect]
     Indication: DRUG USE FOR UNKNOWN INDICATION
     Dosage: 20 MCG/DAY CONTINOUS
     Route: 015
     Dates: start: 20040903
  2. BACTRIM DS [Concomitant]
     Indication: PYELONEPHRITIS
     Route: 048
     Dates: start: 20071206, end: 20071220

REACTIONS (2)
  - PREGNANCY WITH CONTRACEPTIVE DEVICE [None]
  - PYELONEPHRITIS [None]
